FAERS Safety Report 16838779 (Version 3)
Quarter: 2019Q3

REPORT INFORMATION
  Report Type: Spontaneous
  Country: TR (occurrence: TR)
  Receive Date: 20190923
  Receipt Date: 20190923
  Transmission Date: 20191005
  Serious: Yes (Life-Threatening, Hospitalization)
  Sender: FDA-Public Use
  Company Number: TR-PFIZER INC-2019394616

PATIENT
  Age: 68 Year
  Sex: Male

DRUGS (4)
  1. DEFLAZACORT [Suspect]
     Active Substance: DEFLAZACORT
     Indication: TEMPORAL ARTERITIS
     Dosage: 120 MG, DAILY (WHEN ADMITTED)
     Route: 048
  2. ALPRAZOLAM. [Suspect]
     Active Substance: ALPRAZOLAM
     Indication: DEPRESSION
     Dosage: 0.5 MG, DAILY
  3. DEFLAZACORT [Suspect]
     Active Substance: DEFLAZACORT
     Dosage: 90 MG, DAILY
     Route: 048
  4. DEFLAZACORT [Suspect]
     Active Substance: DEFLAZACORT
     Dosage: 150 MG, DAILY
     Route: 048

REACTIONS (1)
  - Toxic epidermal necrolysis [Recovered/Resolved]
